FAERS Safety Report 15776190 (Version 1)
Quarter: 2018Q4

REPORT INFORMATION
  Report Type: Spontaneous
  Country: US (occurrence: US)
  Receive Date: 20181231
  Receipt Date: 20181231
  Transmission Date: 20190205
  Serious: No
  Sender: FDA-Public Use
  Company Number: US-DRREDDYS-USA/USA/18/0106229

PATIENT
  Age: 44 Year
  Sex: Male

DRUGS (1)
  1. SIROLIMUS. [Suspect]
     Active Substance: SIROLIMUS
     Indication: ARTERIOVENOUS MALFORMATION
     Route: 065

REACTIONS (3)
  - Skin ulcer [Recovered/Resolved]
  - Oral mucosa erosion [Recovered/Resolved]
  - Skin infection [Recovered/Resolved]
